FAERS Safety Report 12423301 (Version 1)
Quarter: 2016Q2

REPORT INFORMATION
  Report Type: Spontaneous
  Country: US (occurrence: None)
  Receive Date: 20160531
  Receipt Date: 20160531
  Transmission Date: 20160815
  Serious: No
  Sender: FDA-Public Use
  Company Number: None

PATIENT
  Age: 57 Year
  Sex: Female

DRUGS (1)
  1. SPIRONOLACTONE, 25 MG MUTUAL PHARMACY [Suspect]
     Active Substance: SPIRONOLACTONE
     Indication: HYPERTENSION

REACTIONS (4)
  - Product taste abnormal [None]
  - Product odour abnormal [None]
  - Product substitution issue [None]
  - Drug effect decreased [None]

NARRATIVE: CASE EVENT DATE: 20160420
